FAERS Safety Report 10154944 (Version 4)
Quarter: 2014Q2

REPORT INFORMATION
  Report Type: Spontaneous
  Country: US (occurrence: US)
  Receive Date: 20140506
  Receipt Date: 20140526
  Transmission Date: 20141212
  Serious: No
  Sender: FDA-Public Use
  Company Number: US-PFIZER INC-2014121566

PATIENT
  Age: 83 Year
  Sex: Female
  Weight: 46.71 kg

DRUGS (12)
  1. TOLTERODINE TARTRATE [Suspect]
     Indication: HYPERTONIC BLADDER
     Dosage: 2MG TABLET AT BEDTIME DAILY
     Route: 048
     Dates: start: 20140305
  2. PEPCID [Concomitant]
     Dosage: UNK
  3. CLOPIDOGREL [Concomitant]
     Dosage: 75 MG, UNK
  4. AMLODIPINE [Concomitant]
     Dosage: 40 MG, UNK
  5. LOSARTAN [Concomitant]
     Dosage: UNK
  6. METFORMIN [Concomitant]
     Dosage: 1500 MG, UNK
  7. SIMVASTATIN [Concomitant]
     Dosage: 20 MG, UNK
  8. TOPIRAMATE [Concomitant]
     Dosage: 50 MG, UNK
  9. VITAMIN D3 [Concomitant]
     Dosage: UNK
  10. VITAMIN B12 [Concomitant]
     Dosage: 2000 IU, UNK
  11. IRON [Concomitant]
     Dosage: 325 MG, UNK
  12. ASA [Concomitant]
     Dosage: 83 MG, UNK

REACTIONS (5)
  - Arthritis [Unknown]
  - Gait disturbance [Unknown]
  - Rhinorrhoea [Unknown]
  - Muscle disorder [Unknown]
  - Drug ineffective [Unknown]
